FAERS Safety Report 8192971-5 (Version None)
Quarter: 2012Q1

REPORT INFORMATION
  Report Type: 
  Country: None (occurrence: None)
  Receive Date: 20120221
  Receipt Date: 20111108
  Transmission Date: 20120608
  Serious: No
  Sender: FDA-Public Use
  Company Number: 1000025333

PATIENT
  Age: 31 Year
  Sex: Male

DRUGS (8)
  1. REGLAN [Suspect]
     Indication: MIGRAINE
     Dates: start: 20111002, end: 20111002
  2. BENADRYL [Suspect]
     Indication: MIGRAINE
     Dates: start: 20111002, end: 20111002
  3. HALDOL [Suspect]
     Indication: MIGRAINE
     Dates: start: 20111002, end: 20111002
  4. IMITREX [Concomitant]
  5. CYMBALTA [Concomitant]
  6. LYRICA [Concomitant]
  7. VIIBRYD [Suspect]
     Indication: DEPRESSION
     Dosage: 10 MG (10 MG, 1 IN 1 D), ORAL
     Route: 048
     Dates: start: 20111001, end: 20111001
  8. VIIBRYD [Suspect]
     Indication: DEPRESSION
     Dosage: 10 MG (10 MG, 1 IN 1 D), ORAL
     Route: 048
     Dates: start: 20111001, end: 20111001

REACTIONS (2)
  - PAIN IN EXTREMITY [None]
  - DYSTONIA [None]
